FAERS Safety Report 7550341-4 (Version None)
Quarter: 2011Q2

REPORT INFORMATION
  Report Type: 
  Country: None (occurrence: None)
  Receive Date: 20110615
  Receipt Date: 20100909
  Transmission Date: 20111010
  Serious: No
  Sender: FDA-Public Use
  Company Number: A0880520A

PATIENT
  Age: 39 Year
  Sex: Female

DRUGS (3)
  1. PARNATE [Suspect]
     Indication: DEPRESSION
     Dosage: 40MG PER DAY
     Route: 048
     Dates: start: 20091201, end: 20100601
  2. BIOTIN [Concomitant]
  3. AMBIEN [Concomitant]

REACTIONS (2)
  - ALOPECIA [None]
  - INSOMNIA [None]
